FAERS Safety Report 7623905-7 (Version None)
Quarter: 2011Q3

REPORT INFORMATION
  Report Type: 
  Country: None (occurrence: None)
  Receive Date: 20110720
  Receipt Date: 20110718
  Transmission Date: 20111222
  Serious: No
  Sender: FDA-Public Use
  Company Number: US-PFIZER INC-2011162087

PATIENT

DRUGS (1)
  1. GABAPENTIN [Suspect]
     Dosage: 3X600 MG TABLETS TWICE A DAY

REACTIONS (3)
  - ABDOMINAL DISCOMFORT [None]
  - WRONG TECHNIQUE IN DRUG USAGE PROCESS [None]
  - MALAISE [None]
